FAERS Safety Report 10456733 (Version 1)
Quarter: 2014Q3

REPORT INFORMATION
  Report Type: Spontaneous
  Country: US (occurrence: None)
  Receive Date: 20140828
  Receipt Date: 20140828
  Transmission Date: 20150326
  Serious: Yes (Other)
  Sender: FDA-Public Use
  Company Number: PHEH2013US022362

PATIENT
  Age: 68 Year
  Sex: Female

DRUGS (8)
  1. METOPROLOL (METOPROLOL) [Concomitant]
     Active Substance: METOPROLOL
  2. ATORVASTATIN (ATORVASTATIN) [Concomitant]
     Active Substance: ATORVASTATIN
  3. OMEPRAZOLE (OMEPRAZOLE) [Concomitant]
     Active Substance: OMEPRAZOLE
  4. CARBIDOPA/LEVODOPA (CARBIDOPA, LEVODOPA) [Concomitant]
  5. SANDOSTATIN LAR DEPOT [Suspect]
     Active Substance: OCTREOTIDE ACETATE
     Indication: CARCINOID TUMOUR
     Dosage: 1 PER MONTH, INJECTION NOS
  6. IRESARTAN (IRESARTAN) [Concomitant]
  7. NITROGLCYCERIN (GLYCERYL TRINITRATE) [Concomitant]
  8. ASPIRIN. [Concomitant]
     Active Substance: ASPIRIN

REACTIONS (1)
  - Disease progression [None]
